FAERS Safety Report 9139348 (Version 1)
Quarter: 2013Q1

REPORT INFORMATION
  Report Type: Spontaneous
  Country: GB (occurrence: GB)
  Receive Date: 20130305
  Receipt Date: 20130305
  Transmission Date: 20140127
  Serious: Yes (Other)
  Sender: FDA-Public Use
  Company Number: GB-MYLANLABS-2013S1004162

PATIENT
  Age: 80 Year
  Sex: Male

DRUGS (10)
  1. SPIRONOLACTONE [Suspect]
     Indication: CARDIAC FAILURE CONGESTIVE
     Route: 065
  2. GOSERELIN [Concomitant]
     Indication: PROSTATE CANCER METASTATIC
     Route: 065
  3. BICALUTAMIDE [Concomitant]
     Indication: PROSTATE CANCER METASTATIC
     Route: 065
  4. DIETHYLSTILBESTROL [Concomitant]
     Indication: PROSTATE CANCER METASTATIC
     Route: 065
  5. CYPROTERONE [Concomitant]
     Indication: PROSTATE CANCER METASTATIC
     Route: 065
  6. CYCLOPHOSPHAMIDE [Concomitant]
     Indication: PROSTATE CANCER METASTATIC
     Dosage: DAILY
     Route: 048
  7. DEXAMETHASONE [Concomitant]
     Indication: PROSTATE CANCER METASTATIC
     Route: 065
  8. FUROSEMIDE [Concomitant]
     Indication: CARDIAC FAILURE CONGESTIVE
     Route: 065
  9. RAMIPRIL [Concomitant]
     Indication: CARDIAC FAILURE CONGESTIVE
     Route: 065
  10. DIGOXIN [Concomitant]
     Indication: CARDIAC FAILURE CONGESTIVE
     Route: 065

REACTIONS (2)
  - Prostate cancer [Recovered/Resolved]
  - Bone pain [Recovered/Resolved]
